FAERS Safety Report 12656137 (Version 5)
Quarter: 2016Q3

REPORT INFORMATION
  Report Type: Report from Study
  Country: BE (occurrence: BE)
  Receive Date: 20160816
  Receipt Date: 20160926
  Transmission Date: 20161109
  Serious: Yes (Death, Hospitalization, Disabling)
  Sender: FDA-Public Use
  Company Number: BE-ASTELLAS-2016US030757

PATIENT
  Age: 52 Year
  Sex: Male
  Weight: 60 kg

DRUGS (19)
  1. MEDROL [Concomitant]
     Active Substance: METHYLPREDNISOLONE
     Indication: PRODUCT USED FOR UNKNOWN INDICATION
     Route: 065
  2. NOXAFIL [Suspect]
     Active Substance: POSACONAZOLE
     Route: 048
     Dates: start: 20160818, end: 20160829
  3. VALCYTE [Suspect]
     Active Substance: VALGANCICLOVIR HYDROCHLORIDE
     Indication: CYTOMEGALOVIRUS INFECTION
     Route: 048
  4. FOLAVIT [Concomitant]
     Indication: PRODUCT USED FOR UNKNOWN INDICATION
     Route: 065
  5. SUSTANON                           /00418401/ [Concomitant]
     Indication: PRODUCT USED FOR UNKNOWN INDICATION
     Dosage: 250 MG, ONE IN 2 WEEKS
     Route: 030
  6. URSOFALK [Concomitant]
     Active Substance: URSODIOL
     Indication: PRODUCT USED FOR UNKNOWN INDICATION
     Route: 065
  7. BLINDED ASP0113 [Suspect]
     Active Substance: INVESTIGATIONAL PRODUCT
     Indication: IMMUNISATION
     Route: 030
     Dates: start: 20160511, end: 20160511
  8. BLINDED ASP0113 [Suspect]
     Active Substance: INVESTIGATIONAL PRODUCT
     Route: 030
     Dates: start: 20160601, end: 20160601
  9. NOXAFIL [Suspect]
     Active Substance: POSACONAZOLE
     Indication: BRONCHOPULMONARY ASPERGILLOSIS
     Route: 048
     Dates: start: 20160801, end: 20160808
  10. INSUMAN [Concomitant]
     Active Substance: INSULIN HUMAN
     Indication: PRODUCT USED FOR UNKNOWN INDICATION
     Route: 058
  11. OPIUM                              /00036301/ [Concomitant]
     Active Substance: OPIUM
     Indication: PRODUCT USED FOR UNKNOWN INDICATION
     Route: 065
  12. ALDACTONE [Concomitant]
     Active Substance: SPIRONOLACTONE
     Indication: PRODUCT USED FOR UNKNOWN INDICATION
     Route: 065
  13. LITICAN                            /00690801/ [Concomitant]
     Active Substance: ALIZAPRIDE
     Indication: NAUSEA
     Route: 065
  14. BLINDED ASP0113 [Suspect]
     Active Substance: INVESTIGATIONAL PRODUCT
     Route: 030
     Dates: start: 20160718, end: 20160718
  15. ARANESP [Concomitant]
     Active Substance: DARBEPOETIN ALFA
     Indication: PRODUCT USED FOR UNKNOWN INDICATION
     Route: 042
  16. BLINDED ASP0113 [Suspect]
     Active Substance: INVESTIGATIONAL PRODUCT
     Route: 030
     Dates: start: 20160826, end: 20160826
  17. ADVAGRAF [Suspect]
     Active Substance: TACROLIMUS
     Indication: PROPHYLAXIS AGAINST GRAFT VERSUS HOST DISEASE
     Route: 048
     Dates: start: 20160714, end: 20160805
  18. PANTOMED                           /01263204/ [Concomitant]
     Active Substance: PANTOPRAZOLE SODIUM
     Indication: PRODUCT USED FOR UNKNOWN INDICATION
     Route: 065
  19. ULTRA K [Concomitant]
     Indication: PRODUCT USED FOR UNKNOWN INDICATION
     Route: 065

REACTIONS (4)
  - Aspergillus infection [Fatal]
  - Transfusion [Not Recovered/Not Resolved]
  - Hypotension [Recovering/Resolving]
  - Blood bilirubin increased [Not Recovered/Not Resolved]

NARRATIVE: CASE EVENT DATE: 20160808
